APPROVED DRUG PRODUCT: SILODOSIN
Active Ingredient: SILODOSIN
Strength: 8MG
Dosage Form/Route: CAPSULE;ORAL
Application: A211731 | Product #002
Applicant: ALEMBIC PHARMACEUTICALS LTD
Approved: Nov 22, 2019 | RLD: No | RS: No | Type: DISCN